FAERS Safety Report 7329021-6 (Version None)
Quarter: 2011Q1

REPORT INFORMATION
  Report Type: 
  Country: None (occurrence: None)
  Receive Date: 20110303
  Receipt Date: 20110302
  Transmission Date: 20110831
  Serious: Yes (Other)
  Sender: FDA-Public Use
  Company Number: IT-BRISTOL-MYERS SQUIBB COMPANY-14829931

PATIENT
  Age: 51 Year
  Sex: Male

DRUGS (4)
  1. TENOFOVIR [Suspect]
  2. RITONAVIR [Suspect]
  3. LAMIVUDINE [Suspect]
  4. ATAZANAVIR [Suspect]
     Indication: HIV INFECTION

REACTIONS (1)
  - CUPULOLITHIASIS [None]
